FAERS Safety Report 6208972-X (Version None)
Quarter: 2009Q2

REPORT INFORMATION
  Report Type: 
  Country: None (occurrence: None)
  Receive Date: 20090522
  Receipt Date: 20090206
  Transmission Date: 20091009
  Serious: No
  Sender: FDA-Public Use
  Company Number: 8042624

PATIENT
  Age: 52 Year
  Sex: Female
  Weight: 86.3 kg

DRUGS (6)
  1. CIMZIA [Suspect]
     Indication: CROHN'S DISEASE
     Dosage: 400 MG SC
     Route: 058
     Dates: start: 20090123
  2. PREDNISONE [Concomitant]
  3. SULFASALAZINE [Concomitant]
  4. PREMARIN [Concomitant]
  5. TRAMADOL HCL [Concomitant]
  6. ZOLOFT [Concomitant]

REACTIONS (1)
  - INJECTION SITE SWELLING [None]
